FAERS Safety Report 13886102 (Version 4)
Quarter: 2017Q4

REPORT INFORMATION
  Report Type: Spontaneous
  Country: CZ (occurrence: CZ)
  Receive Date: 20170821
  Receipt Date: 20171013
  Transmission Date: 20180320
  Serious: Yes (Hospitalization, Other)
  Sender: FDA-Public Use
  Company Number: CZ-BRISTOL-MYERS SQUIBB COMPANY-BMS-2017-074924

PATIENT
  Age: 56 Year
  Sex: Female

DRUGS (3)
  1. CALTRATE                           /00944201/ [Concomitant]
     Active Substance: CALCIUM CARBONATE\CHOLECALCIFEROL
     Indication: ELECTROLYTE SUBSTITUTION THERAPY
     Dosage: UNK UNK, QD
     Route: 048
  2. LETROX [Concomitant]
     Active Substance: LEVOTHYROXINE SODIUM
     Indication: ELECTROLYTE SUBSTITUTION THERAPY
     Dosage: 100 ?G, QD
     Route: 048
     Dates: start: 1997
  3. YERVOY [Suspect]
     Active Substance: IPILIMUMAB
     Indication: MALIGNANT MELANOMA
     Dosage: 3 MG/KG, UNK
     Route: 042
     Dates: start: 20160608, end: 20160629

REACTIONS (2)
  - Autoimmune colitis [Recovered/Resolved]
  - Abdominal pain [Recovered/Resolved]

NARRATIVE: CASE EVENT DATE: 20170719
